FAERS Safety Report 5478271-2 (Version None)
Quarter: 2007Q4

REPORT INFORMATION
  Report Type: 
  Country: None (occurrence: None)
  Receive Date: 20071005
  Receipt Date: 20070718
  Transmission Date: 20080405
  Serious: No
  Sender: FDA-Public Use
  Company Number: US-BRISTOL-MYERS SQUIBB COMPANY-13850284

PATIENT
  Age: 53 Year
  Sex: Female
  Weight: 73 kg

DRUGS (2)
  1. AVAPRO [Suspect]
     Dates: start: 20060101
  2. LEXAPRO [Concomitant]

REACTIONS (1)
  - ABDOMINAL DISTENSION [None]
